FAERS Safety Report 16208652 (Version 1)
Quarter: 2019Q2

REPORT INFORMATION
  Report Type: Spontaneous
  Country: DE (occurrence: DE)
  Receive Date: 20190417
  Receipt Date: 20190417
  Transmission Date: 20190711
  Serious: Yes (Other)
  Sender: FDA-Public Use
  Company Number: DE-TEVA-2019-DE-1037727

PATIENT
  Age: 58 Year
  Sex: Female
  Weight: 57 kg

DRUGS (1)
  1. CETIRIZIN RATIOPHARM BEI ALLERGIEN 10 MG [Suspect]
     Active Substance: CETIRIZINE HYDROCHLORIDE
     Indication: NASAL PRURITUS
     Dosage: 1/2 TABL.5,MG (ACTIVE INGREDIENT: CETIRIZINDIHYDROCHLORIDE)
     Route: 048
     Dates: start: 20190325, end: 20190325

REACTIONS (7)
  - Somnolence [Recovered/Resolved]
  - Fatigue [Recovered/Resolved]
  - Swollen tongue [Recovered/Resolved]
  - Swelling face [Recovered/Resolved]
  - Hypoaesthesia oral [Recovered/Resolved]
  - Skin tightness [Recovered/Resolved]
  - Lip swelling [Recovered/Resolved]

NARRATIVE: CASE EVENT DATE: 20190325
